FAERS Safety Report 5292263-8 (Version None)
Quarter: 2007Q2

REPORT INFORMATION
  Report Type: 
  Country: None (occurrence: None)
  Receive Date: 20070410
  Receipt Date: 20070406
  Transmission Date: 20071010
  Serious: Yes (Death, Hospitalization)
  Sender: FDA-Public Use
  Company Number: FR-SANOFI-SYNTHELABO-F01200501423

PATIENT
  Sex: Male

DRUGS (2)
  1. OXALIPLATIN [Suspect]
     Indication: COLORECTAL CANCER METASTATIC
     Route: 042
     Dates: start: 20040830, end: 20040830
  2. CAPECITABINE [Suspect]
     Dosage: 3660 MG FOR 14 DAYS EVERY 3 WEEKS
     Route: 048
     Dates: start: 20040830

REACTIONS (1)
  - SEPSIS [None]
